FAERS Safety Report 24156597 (Version 1)
Quarter: 2024Q3

REPORT INFORMATION
  Report Type: Spontaneous
  Country: CN (occurrence: CN)
  Receive Date: 20240731
  Receipt Date: 20240731
  Transmission Date: 20241017
  Serious: Yes (Life-Threatening)
  Sender: BAYER
  Company Number: CN-BAYER-2024A109922

PATIENT
  Age: 51 Year
  Sex: Male
  Weight: 65 kg

DRUGS (1)
  1. ULTRAVIST [Suspect]
     Active Substance: IOPROMIDE
     Indication: Angiocardiogram
     Dosage: 100 ML, ONCE
     Route: 041
     Dates: start: 20240724, end: 20240724

REACTIONS (2)
  - Hiccups [Recovering/Resolving]
  - Blood pressure decreased [None]

NARRATIVE: CASE EVENT DATE: 20240724
